FAERS Safety Report 9915021 (Version 1)
Quarter: 2014Q1

REPORT INFORMATION
  Report Type: Spontaneous
  Country: US (occurrence: US)
  Receive Date: 20140220
  Receipt Date: 20140220
  Transmission Date: 20141002
  Serious: No
  Sender: FDA-Public Use
  Company Number: US-TEVA-463195USA

PATIENT
  Age: 77 Year
  Sex: Female

DRUGS (2)
  1. PROAIR HFA [Suspect]
     Indication: DYSPNOEA
     Dates: start: 20130925
  2. LISTERINE [Suspect]

REACTIONS (3)
  - Gingival pain [Unknown]
  - Gingival disorder [Unknown]
  - Burning sensation [Unknown]
